FAERS Safety Report 12617863 (Version 3)
Quarter: 2016Q4

REPORT INFORMATION
  Report Type: Spontaneous
  Country: US (occurrence: US)
  Receive Date: 20160803
  Receipt Date: 20161014
  Transmission Date: 20170207
  Serious: Yes (Hospitalization, Other)
  Sender: FDA-Public Use
  Company Number: US-PFIZER INC-2016357623

PATIENT
  Age: 65 Year
  Sex: Female

DRUGS (3)
  1. SUTENT [Suspect]
     Active Substance: SUNITINIB MALATE
     Indication: PANCREATIC NEUROENDOCRINE TUMOUR METASTATIC
     Dosage: 37.5 MG, DAILY
     Dates: start: 20150413, end: 20160711
  2. CELEBREX [Concomitant]
     Active Substance: CELECOXIB
     Dosage: UNK, AS NEEDED
  3. SUTENT [Suspect]
     Active Substance: SUNITINIB MALATE
     Indication: HEPATIC CANCER
     Dosage: 37.5 MG, 1X/DAY
     Route: 048
     Dates: start: 201504, end: 201606

REACTIONS (10)
  - Arthralgia [Unknown]
  - Fatigue [Unknown]
  - Skin exfoliation [Unknown]
  - Oral discomfort [Unknown]
  - Abdominal pain upper [Unknown]
  - Pancreatic neuroendocrine tumour metastatic [Not Recovered/Not Resolved]
  - Disease progression [Not Recovered/Not Resolved]
  - Pain in extremity [Unknown]
  - Tongue disorder [Unknown]
  - Hepatic pain [Unknown]

NARRATIVE: CASE EVENT DATE: 201504
